FAERS Safety Report 8987316 (Version 1)
Quarter: 2012Q4

REPORT INFORMATION
  Report Type: 
  Country: US (occurrence: US)
  Receive Date: 20121227
  Receipt Date: 20121227
  Transmission Date: 20130627
  Serious: Yes (Other)
  Sender: FDA-Public Use
  Company Number: US-SHIRE-ALL1-2012-06384

PATIENT
  Age: 34 Year
  Sex: Female
  Weight: 58.05 kg

DRUGS (1)
  1. LIALDA [Suspect]
     Indication: COLITIS
     Dosage: 3.6 g(3x1.2g tablets), 1x/day:qd
     Route: 048
     Dates: start: 20111201, end: 20120106

REACTIONS (3)
  - Abortion spontaneous [Recovered/Resolved]
  - Exposure during pregnancy [Recovered/Resolved]
  - Off label use [Recovered/Resolved]
